FAERS Safety Report 8531981-2 (Version None)
Quarter: 2012Q3

REPORT INFORMATION
  Report Type: 
  Country: None (occurrence: None)
  Receive Date: 20120723
  Receipt Date: 20120712
  Transmission Date: 20120928
  Serious: No
  Sender: FDA-Public Use
  Company Number: US-B.I. PHARMACEUTICALS,INC./RIDGEFIELD-2012-BP-15579BP

PATIENT
  Age: 57 Year
  Sex: Male

DRUGS (6)
  1. BENZONATATE [Concomitant]
     Indication: COUGH
  2. HYDROCHLOROTHIAZIDE [Concomitant]
     Indication: HYPERTENSION
  3. POTASSIUM CHLORIDE [Concomitant]
     Indication: SUPPLEMENTATION THERAPY
  4. ZANTAC [Suspect]
     Indication: DYSPEPSIA
     Dosage: 300 MG
     Route: 048
     Dates: start: 20120711
  5. VITAMIN D [Concomitant]
     Indication: SUPPLEMENTATION THERAPY
  6. TAMSULOSIN HCL [Concomitant]
     Indication: PROSTATOMEGALY

REACTIONS (1)
  - DRUG INEFFECTIVE [None]
